FAERS Safety Report 14378920 (Version 1)
Quarter: 2018Q1

REPORT INFORMATION
  Report Type: Other
  Country: FR (occurrence: FR)
  Receive Date: 20180112
  Receipt Date: 20180112
  Transmission Date: 20180509
  Serious: Yes (Death)
  Sender: FDA-Public Use
  Company Number: FR-GLENMARK PHARMACEUTICALS-2017GMK030487

PATIENT

DRUGS (1)
  1. BENDAMUSTINE [Suspect]
     Active Substance: BENDAMUSTINE
     Indication: BLASTIC PLASMACYTOID DENDRITIC CELL NEOPLASIA
     Dosage: 300 MG/M2, 100 MG/M2, QW3 (D1, D2) ? 1 COURSE
     Route: 065

REACTIONS (2)
  - Malignant neoplasm progression [Fatal]
  - Blastic plasmacytoid dendritic cell neoplasia [Fatal]
